FAERS Safety Report 4634126-4 (Version None)
Quarter: 2005Q2

REPORT INFORMATION
  Report Type: 
  Country: None (occurrence: None)
  Receive Date: 20050413
  Receipt Date: 20050405
  Transmission Date: 20051028
  Serious: Yes (Other)
  Sender: FDA-Public Use
  Company Number: NL-GLAXOSMITHKLINE-B0377551A

PATIENT
  Age: 29 Year
  Sex: Female

DRUGS (1)
  1. PAROXETINE HYDROCHLORIDE [Suspect]
     Indication: BIPOLAR DISORDER
     Dosage: 30MG UNKNOWN
     Route: 065
     Dates: start: 20010101

REACTIONS (4)
  - AGGRESSION [None]
  - EUPHORIC MOOD [None]
  - LIBIDO INCREASED [None]
  - MANIA [None]
